FAERS Safety Report 5450982-4 (Version None)
Quarter: 2007Q3

REPORT INFORMATION
  Report Type: 
  Country: None (occurrence: None)
  Receive Date: 20070911
  Receipt Date: 20070831
  Transmission Date: 20080115
  Serious: Yes (Other)
  Sender: FDA-Public Use
  Company Number: TOR-2007-0023 (1)

PATIENT
  Age: 79 Year
  Sex: Female

DRUGS (5)
  1. FARESTON [Suspect]
     Indication: BREAST CANCER
     Dosage: 120 MG, ORAL
     Route: 048
     Dates: start: 20040121, end: 20060626
  2. XELODA [Concomitant]
  3. FAMOTIDINE [Concomitant]
  4. BERIZYM [Concomitant]
  5. MAZULENE (AZULENE SULFONATE-SODIUM) [Concomitant]

REACTIONS (1)
  - BLOOD GLUCOSE INCREASED [None]
